FAERS Safety Report 17761414 (Version 1)
Quarter: 2020Q2

REPORT INFORMATION
  Report Type: Spontaneous
  Country: US (occurrence: US)
  Receive Date: 20200508
  Receipt Date: 20200508
  Transmission Date: 20200714
  Serious: No
  Sender: FDA-Public Use
  Company Number: NVSC2020US124918

PATIENT
  Age: 91 Year
  Sex: Female

DRUGS (2)
  1. DUREZOL [Suspect]
     Active Substance: DIFLUPREDNATE
     Indication: PRODUCT USED FOR UNKNOWN INDICATION
     Dosage: UNKNOWN
     Route: 065
     Dates: start: 202001
  2. DUREZOL [Suspect]
     Active Substance: DIFLUPREDNATE
     Dosage: UNKNOWN
     Route: 065
     Dates: start: 202003

REACTIONS (3)
  - Product prescribing error [Unknown]
  - Nervousness [Unknown]
  - Anxiety [Unknown]
